FAERS Safety Report 6183509-2 (Version None)
Quarter: 2009Q2

REPORT INFORMATION
  Report Type: 
  Country: None (occurrence: None)
  Receive Date: 20090506
  Receipt Date: 20090428
  Transmission Date: 20091009
  Serious: Yes (Other)
  Sender: FDA-Public Use
  Company Number: CHPA2009US10469

PATIENT
  Age: 49 Year
  Sex: Female

DRUGS (1)
  1. NICOTINE [Suspect]
     Indication: SMOKING CESSATION THERAPY
     Dosage: 21 MG, QD, TRANSDERMAL, 21 MG, QD, DURING DAYTIME. TRANSDERMAL
     Route: 062
     Dates: start: 20090420

REACTIONS (4)
  - COUGH [None]
  - DRUG EFFECT INCREASED [None]
  - HALLUCINATION [None]
  - INSOMNIA [None]
